FAERS Safety Report 8822855 (Version 1)
Quarter: 2012Q4

REPORT INFORMATION
  Report Type: 
  Country: US (occurrence: US)
  Receive Date: 20121003
  Receipt Date: 20121003
  Transmission Date: 20130627
  Serious: Yes (Death)
  Sender: FDA-Public Use
  Company Number: US-ROCHE-1129973

PATIENT
  Sex: Male

DRUGS (6)
  1. RITUXAN [Suspect]
     Indication: LYMPHOMA
     Route: 065
  2. RITUXAN [Suspect]
     Indication: OFF LABEL USE
  3. CECLOR [Concomitant]
     Route: 048
  4. CEPHALOSPORIN (UNK INGREDIENTS) [Concomitant]
  5. ISOPROPYL ALCOHOL [Concomitant]
  6. HEXACHLOROPHENE [Concomitant]

REACTIONS (2)
  - Death [Fatal]
  - Rash [Unknown]
